FAERS Safety Report 24291764 (Version 5)
Quarter: 2025Q1

REPORT INFORMATION
  Report Type: Report from Study
  Country: US (occurrence: US)
  Receive Date: 20240906
  Receipt Date: 20250311
  Transmission Date: 20250408
  Serious: No
  Sender: SUNOVION
  Company Number: US-SUMITOMO PHARMA SWITZERLAND GMBH-2024SPA001264

PATIENT

DRUGS (3)
  1. ORGOVYX [Suspect]
     Active Substance: RELUGOLIX
     Indication: Prostate cancer
     Dosage: 360 MG, SINGLE
     Route: 048
     Dates: start: 20240606, end: 20240606
  2. ORGOVYX [Suspect]
     Active Substance: RELUGOLIX
     Dosage: 120 MG, QD
     Route: 048
     Dates: start: 20240607
  3. NUBEQA [Concomitant]
     Active Substance: DAROLUTAMIDE
     Indication: Prostate cancer
     Dosage: 600 MG, BID (TAKE 2X300 MG TABLETS TWICE DAILY)
     Route: 048
     Dates: start: 20240606

REACTIONS (7)
  - Blood cholesterol abnormal [Unknown]
  - Body temperature fluctuation [Unknown]
  - Abdominal discomfort [Unknown]
  - Dysgeusia [Unknown]
  - Ageusia [Unknown]
  - Hot flush [Unknown]
  - Fatigue [Unknown]
